FAERS Safety Report 13465769 (Version 2)
Quarter: 2017Q4

REPORT INFORMATION
  Report Type: Report from Study
  Country: BE (occurrence: BE)
  Receive Date: 20170421
  Receipt Date: 20171102
  Transmission Date: 20180320
  Serious: Yes (Death, Life-Threatening, Other)
  Sender: FDA-Public Use
  Company Number: BE-ROCHE-1920625

PATIENT

DRUGS (5)
  1. ASPIRIN. [Concomitant]
     Active Substance: ASPIRIN
     Dosage: 160 TO 325 MG FOLLOWED BY DAILY DOSE OF 80 TO 325 MG
     Route: 065
  2. ALTEPLASE. [Suspect]
     Active Substance: ALTEPLASE
     Indication: ACUTE MYOCARDIAL INFARCTION
     Route: 040
  3. ALTEPLASE. [Suspect]
     Active Substance: ALTEPLASE
     Dosage: 0.75 MG OVER A 30-MINUTE PERIOD, NOT TO EXCEED 50 MG, AND THEN BY AN INFUSION OF 0.5 MG PER KILOGRAM
     Route: 042
  4. HEPARIN [Concomitant]
     Active Substance: HEPARIN SODIUM
     Dosage: 1000 U PER HOUR FOR AT LEAST 48 HOURS
     Route: 042
  5. HEPARIN [Concomitant]
     Active Substance: HEPARIN SODIUM
     Dosage: 5000 U
     Route: 040

REACTIONS (19)
  - Haemorrhagic stroke [Unknown]
  - Ventricular septal defect acquired [Unknown]
  - Myocardial infarction [Unknown]
  - Hypotension [Unknown]
  - Atrioventricular block complete [Unknown]
  - Haemorrhage intracranial [Unknown]
  - Ventricular fibrillation [Unknown]
  - Atrioventricular block second degree [Unknown]
  - Haemorrhage [Unknown]
  - Anaphylactic reaction [Unknown]
  - Cardiac arrest [Unknown]
  - Death [Fatal]
  - Cerebrovascular accident [Unknown]
  - Ischaemic stroke [Unknown]
  - Haemorrhagic transformation stroke [Unknown]
  - Angina pectoris [Unknown]
  - Mitral valve incompetence [Unknown]
  - Cardiogenic shock [Unknown]
  - Ventricular tachycardia [Unknown]
